FAERS Safety Report 5381929-7 (Version None)
Quarter: 2007Q2

REPORT INFORMATION
  Report Type: 
  Country: None (occurrence: None)
  Receive Date: 20070629
  Receipt Date: 20070406
  Transmission Date: 20071010
  Serious: No
  Sender: FDA-Public Use
  Company Number: PHEH2007US00575

PATIENT
  Age: 70 Year
  Sex: Female
  Weight: 57.1 kg

DRUGS (3)
  1. EXJADE [Suspect]
     Indication: IRON OVERLOAD
     Dosage: 1000 MG, QD, ORAL
     Route: 048
     Dates: start: 20061226, end: 20070105
  2. ZOLOFT [Concomitant]
  3. METOPROLOL TARTRATE [Concomitant]

REACTIONS (3)
  - EPISTAXIS [None]
  - PRURITUS [None]
  - RASH MACULO-PAPULAR [None]
